FAERS Safety Report 23700047 (Version 1)
Quarter: 2024Q2

REPORT INFORMATION
  Report Type: Spontaneous
  Country: US (occurrence: US)
  Receive Date: 20240403
  Receipt Date: 20240403
  Transmission Date: 20240715
  Serious: Yes (Other)
  Sender: FDA-Public Use
  Company Number: US-CADILA HEALTHCARE LIMITED-US-ZYDUS-104973

PATIENT

DRUGS (7)
  1. CLINDAMYCIN [Suspect]
     Active Substance: CLINDAMYCIN
     Indication: Eye infection toxoplasmal
     Dosage: 1.0 MG IN 0.1ML IN THE LEFT EYE
  2. LEUCOVORIN [Suspect]
     Active Substance: LEUCOVORIN\LEUCOVORIN CALCIUM
     Indication: Eye infection toxoplasmal
     Dosage: UNK
     Route: 065
  3. SULFADIAZINE [Suspect]
     Active Substance: SULFADIAZINE
     Indication: Eye infection toxoplasmal
     Dosage: UNK
     Route: 065
  4. PREDNISOLONE ACETATE [Suspect]
     Active Substance: PREDNISOLONE ACETATE
     Indication: Eye infection toxoplasmal
     Dosage: 1 PERCENT, QID IN THE LEFT EYE
     Route: 048
  5. PYRIMETHAMINE [Suspect]
     Active Substance: PYRIMETHAMINE
     Indication: Eye infection toxoplasmal
     Dosage: UNK
     Route: 065
  6. PREDNISONE [Suspect]
     Active Substance: PREDNISONE
     Indication: Eye infection toxoplasmal
     Dosage: UNK
     Route: 065
  7. COTRIMOXAZOLE [Concomitant]
     Active Substance: SULFAMETHOXAZOLE\TRIMETHOPRIM
     Indication: Eye infection toxoplasmal
     Dosage: UNK
     Route: 048

REACTIONS (2)
  - Retinopathy [Unknown]
  - Rash [Unknown]
